FAERS Safety Report 19770060 (Version 2)
Quarter: 2021Q3

REPORT INFORMATION
  Report Type: Report from Study
  Country: None (occurrence: US)
  Receive Date: 20210831
  Receipt Date: 20210915
  Transmission Date: 20211014
  Serious: Yes (Hospitalization)
  Sender: FDA-Public Use
  Company Number: US-ABBVIE-21K-163-4059936-00

PATIENT
  Age: 25 Year
  Sex: Female
  Weight: 62.43 kg

DRUGS (3)
  1. HUMIRA [Suspect]
     Active Substance: ADALIMUMAB
     Indication: CROHN^S DISEASE
     Route: 058
     Dates: start: 202108, end: 20210823
  2. HUMIRA [Suspect]
     Active Substance: ADALIMUMAB
     Indication: CROHN^S DISEASE
     Dosage: DAY 1, LOADING DOSE
     Route: 058
     Dates: start: 20210719, end: 20210719
  3. HUMIRA [Suspect]
     Active Substance: ADALIMUMAB
     Dosage: DAY 15, LOADING DOSE
     Route: 058
     Dates: start: 20210802, end: 20210802

REACTIONS (3)
  - Pancytopenia [Unknown]
  - Small intestinal obstruction [Recovered/Resolved]
  - Contusion [Unknown]

NARRATIVE: CASE EVENT DATE: 2021
